FAERS Safety Report 8319896-6 (Version None)
Quarter: 2012Q2

REPORT INFORMATION
  Report Type: 
  Country: None (occurrence: None)
  Receive Date: 20120427
  Receipt Date: 20120425
  Transmission Date: 20120825
  Serious: Yes (Death)
  Sender: FDA-Public Use
  Company Number: US-CELGENEUS-163-21880-12023202

PATIENT
  Sex: Male

DRUGS (5)
  1. PRILOSEC [Concomitant]
     Dosage: 20 MILLIGRAM
     Route: 048
  2. COUMADIN [Concomitant]
     Dosage: 2 MILLIGRAM
     Route: 048
     Dates: start: 20110901, end: 20120131
  3. REVLIMID [Suspect]
     Indication: MANTLE CELL LYMPHOMA
     Dosage: 10 MILLIGRAM
     Route: 048
     Dates: start: 20110801, end: 20120120
  4. LOPRESSOR [Concomitant]
     Dosage: 50 MILLIGRAM
     Route: 048
  5. FLOMAX [Concomitant]
     Dosage: .4 MILLIGRAM
     Route: 048

REACTIONS (2)
  - FULL BLOOD COUNT DECREASED [None]
  - MANTLE CELL LYMPHOMA REFRACTORY [None]
